FAERS Safety Report 21362998 (Version 1)
Quarter: 2022Q3

REPORT INFORMATION
  Report Type: Spontaneous
  Country: ES (occurrence: ES)
  Receive Date: 20220922
  Receipt Date: 20220922
  Transmission Date: 20221027
  Serious: Yes (Hospitalization, Other)
  Sender: FDA-Public Use
  Company Number: ES-AEMPS-1257560

PATIENT
  Age: 76 Year
  Sex: Female

DRUGS (11)
  1. HYDROCHLOROTHIAZIDE\OLMESARTAN MEDOXOMIL [Suspect]
     Active Substance: HYDROCHLOROTHIAZIDE\OLMESARTAN MEDOXOMIL
     Indication: Hypertension
     Dosage: UNK (1.0 COMP C/24 H0
     Route: 065
     Dates: start: 20211231
  2. SERTRALINE [Suspect]
     Active Substance: SERTRALINE HYDROCHLORIDE
     Indication: Depression
     Dosage: 1.0 COMP C/24 H
     Route: 065
     Dates: start: 20220819
  3. FUROSEMIDE [Suspect]
     Active Substance: FUROSEMIDE
     Indication: Hypertension
     Dosage: C/24 H
     Route: 065
     Dates: start: 20220804
  4. ATORVASTATIN CALCIUM [Concomitant]
     Active Substance: ATORVASTATIN CALCIUM
     Indication: Bronchiectasis
     Dosage: 20 MILLIGRAM CE
     Route: 048
     Dates: start: 20211230
  5. BISOPROLOL FUMARATE [Concomitant]
     Active Substance: BISOPROLOL FUMARATE
     Indication: Atrial fibrillation
     Dosage: 5 MILLIGRAM (A-DECE )
     Route: 048
     Dates: start: 20220513
  6. ELIQUIS [Concomitant]
     Active Substance: APIXABAN
     Indication: Atrial fibrillation
     Dosage: 5 MILLIGRAM C/12 H
     Route: 048
     Dates: start: 20210219
  7. LEVOTHYROXINE SODIUM [Concomitant]
     Active Substance: LEVOTHYROXINE SODIUM
     Indication: Hypothyroidism
     Dosage: 50 MICROGRAM
     Route: 048
     Dates: start: 20210901
  8. OLMESARTAN MEDOXOMIL [Concomitant]
     Active Substance: OLMESARTAN MEDOXOMIL
     Indication: Hypertension
     Dosage: 20 MILLIGRAM DE
     Route: 048
     Dates: start: 20220524
  9. METFORMIN HYDROCHLORIDE [Concomitant]
     Active Substance: METFORMIN HYDROCHLORIDE
     Indication: Type 2 diabetes mellitus
     Dosage: 850 MILLIGRAM  DECE
     Route: 048
     Dates: start: 20201217
  10. OMEPRAZOL CINFA [Concomitant]
     Indication: Dyspepsia
     Dosage: 20 MILLIGRAM A-DE
     Route: 048
     Dates: start: 20190215
  11. PARACETAMOL CINFA [Concomitant]
     Indication: Enthesopathy
     Dosage: 1 GRAM DECOCE
     Route: 048
     Dates: start: 20190912

REACTIONS (3)
  - Syncope [Recovered/Resolved]
  - Dizziness [Recovered/Resolved]
  - Hyponatraemia [Recovered/Resolved]

NARRATIVE: CASE EVENT DATE: 20220821
